FAERS Safety Report 6261318-3 (Version None)
Quarter: 2009Q3

REPORT INFORMATION
  Report Type: 
  Country: None (occurrence: None)
  Receive Date: 20090709
  Receipt Date: 20090703
  Transmission Date: 20100115
  Serious: Yes (Other)
  Sender: FDA-Public Use
  Company Number: CA-ASTRAZENECA-2009UW14882

PATIENT
  Age: 51 Year
  Sex: Male
  Weight: 96.2 kg

DRUGS (1)
  1. SYMBICORT [Suspect]
     Route: 055
     Dates: start: 20070927

REACTIONS (3)
  - COUGH [None]
  - DRUG INEFFECTIVE [None]
  - DYSPNOEA [None]
